FAERS Safety Report 24327958 (Version 1)
Quarter: 2024Q3

REPORT INFORMATION
  Report Type: Spontaneous
  Country: CA (occurrence: CA)
  Receive Date: 20240917
  Receipt Date: 20240917
  Transmission Date: 20241017
  Serious: Yes (Hospitalization, Other)
  Sender: PFIZER
  Company Number: CA-PFIZER INC-202300100198

PATIENT
  Age: 61 Year
  Sex: Female

DRUGS (3)
  1. RUXIENCE [Suspect]
     Active Substance: RITUXIMAB-PVVR
     Indication: Rheumatoid arthritis
     Dosage: 500 MG SINGLE DOSE AT Q 6 MONTHS (EVERY 6 MONTHS)
     Route: 042
     Dates: start: 20230330
  2. NAPROSYN [Concomitant]
     Active Substance: NAPROXEN
     Dosage: UNKNOWN
  3. PREVACID [Concomitant]
     Active Substance: LANSOPRAZOLE
     Dosage: UNK

REACTIONS (3)
  - Immunodeficiency [Unknown]
  - Off label use [Unknown]
  - Off label use [Unknown]

NARRATIVE: CASE EVENT DATE: 20230101
